FAERS Safety Report 19956233 (Version 3)
Quarter: 2022Q3

REPORT INFORMATION
  Report Type: Spontaneous
  Country: US (occurrence: US)
  Receive Date: 20211014
  Receipt Date: 20220713
  Transmission Date: 20221027
  Serious: Yes (Other)
  Sender: FDA-Public Use
  Company Number: US-PFIZER INC-2021384024

PATIENT
  Age: 57 Year
  Sex: Female

DRUGS (4)
  1. IBRANCE [Suspect]
     Active Substance: PALBOCICLIB
     Dosage: 100 MG
     Dates: start: 20180801
  2. IBRANCE [Suspect]
     Active Substance: PALBOCICLIB
     Dosage: 100 MG
     Dates: start: 20180828
  3. IBRANCE [Suspect]
     Active Substance: PALBOCICLIB
     Dosage: UNK
     Dates: start: 20190515
  4. IBRANCE [Suspect]
     Active Substance: PALBOCICLIB
     Dosage: 100 MG
     Dates: start: 20211228

REACTIONS (6)
  - Neutropenia [Recovering/Resolving]
  - White blood cell count decreased [Recovering/Resolving]
  - Blood pressure increased [Unknown]
  - Muscle spasms [Unknown]
  - Pain [Unknown]
  - Alopecia [Unknown]

NARRATIVE: CASE EVENT DATE: 20211201
